FAERS Safety Report 15260716 (Version 1)
Quarter: 2018Q3

REPORT INFORMATION
  Report Type: Spontaneous
  Country: US (occurrence: US)
  Receive Date: 20180809
  Receipt Date: 20180809
  Transmission Date: 20181010
  Serious: Yes (Hospitalization)
  Sender: FDA-Public Use
  Company Number: US-STRIDES ARCOLAB LIMITED-2017SP014142

PATIENT

DRUGS (2)
  1. PREDNISOLONE. [Suspect]
     Active Substance: PREDNISOLONE
     Indication: CHRONIC GRAFT VERSUS HOST DISEASE
     Dosage: UNKNOWN
     Route: 065
  2. TACROLIMUS. [Suspect]
     Active Substance: TACROLIMUS
     Indication: CHRONIC GRAFT VERSUS HOST DISEASE
     Dosage: UNKNOWN
     Route: 065

REACTIONS (8)
  - Chest discomfort [Recovered/Resolved]
  - Off label use [Unknown]
  - Nocardiosis [Recovered/Resolved]
  - Sepsis [Recovered/Resolved]
  - Eye oedema [Recovered/Resolved]
  - Erythema [Recovered/Resolved]
  - Pneumonia [Recovered/Resolved]
  - Hypotension [Recovered/Resolved]
